FAERS Safety Report 4790453-1 (Version None)
Quarter: 2005Q4

REPORT INFORMATION
  Report Type: 
  Country: None (occurrence: None)
  Receive Date: 20051005
  Receipt Date: 20050919
  Transmission Date: 20060501
  Serious: Yes (Hospitalization)
  Sender: FDA-Public Use
  Company Number: US_0502112714

PATIENT
  Age: 52 Year
  Sex: Male
  Weight: 89 kg

DRUGS (5)
  1. ZYPREXA [Suspect]
     Indication: ANXIETY
     Dosage: 10 MG
     Dates: start: 20010826, end: 20031026
  2. VENLAFAXINE HCL [Concomitant]
  3. LASIX [Concomitant]
  4. ZOCOR [Concomitant]
  5. SEROQUEL [Concomitant]

REACTIONS (17)
  - BLOOD CHOLESTEROL ABNORMAL [None]
  - BLOOD CHOLESTEROL INCREASED [None]
  - BLOOD TRIGLYCERIDES INCREASED [None]
  - CHEST DISCOMFORT [None]
  - CHEST PAIN [None]
  - CORONARY ARTERY DISEASE [None]
  - DIABETES MELLITUS [None]
  - DIZZINESS [None]
  - DYSPNOEA [None]
  - HAEMATURIA [None]
  - HYPERGLYCAEMIA [None]
  - LOW DENSITY LIPOPROTEIN INCREASED [None]
  - NAUSEA [None]
  - OBESITY [None]
  - POLYDIPSIA [None]
  - STRESS [None]
  - WEIGHT DECREASED [None]
